FAERS Safety Report 14746496 (Version 1)
Quarter: 2018Q2

REPORT INFORMATION
  Report Type: Other
  Country: ES (occurrence: ES)
  Receive Date: 20180411
  Receipt Date: 20180411
  Transmission Date: 20180711
  Serious: Yes (Hospitalization)
  Sender: FDA-Public Use
  Company Number: ES-GLENMARK PHARMACEUTICALS-2018GMK034185

PATIENT

DRUGS (2)
  1. LINEZOLID. [Suspect]
     Active Substance: LINEZOLID
     Indication: EXTRADURAL ABSCESS
     Dosage: 600 MG, DOS VECES AL D?A/ EVERY HOUR
     Route: 042
     Dates: start: 20170210, end: 20170217
  2. CEFTRIAXONA [Suspect]
     Active Substance: CEFTRIAXONE
     Indication: EXTRADURAL ABSCESS
     Dosage: 2 G, QD (2 GR, UNA VEZ AL D?A)
     Route: 042
     Dates: start: 20170210, end: 20170217

REACTIONS (1)
  - Hepatitis cholestatic [Recovering/Resolving]

NARRATIVE: CASE EVENT DATE: 20170217
